FAERS Safety Report 22043807 (Version 1)
Quarter: 2023Q1

REPORT INFORMATION
  Report Type: Spontaneous
  Country: JP (occurrence: JP)
  Receive Date: 20230228
  Receipt Date: 20230228
  Transmission Date: 20230417
  Serious: Yes (Death, Life-Threatening, Hospitalization, Other)
  Sender: FDA-Public Use
  Company Number: JP-MLMSERVICE-2023021441055851

PATIENT
  Age: 56 Year
  Sex: Female

DRUGS (17)
  1. CISPLATIN [Suspect]
     Active Substance: CISPLATIN
     Indication: Nodular lymphocyte predominant Hodgkin lymphoma
     Dosage: CUMULATIVE DOSE: 2 CYCLICAL, TWO CYCLES OF GDP
  2. ETOPOSIDE [Suspect]
     Active Substance: ETOPOSIDE
     Indication: Bone marrow conditioning regimen
  3. GEMCITABINE [Suspect]
     Active Substance: GEMCITABINE
     Indication: Nodular lymphocyte predominant Hodgkin lymphoma
     Dosage: CUMULATIVE DOSE: 2 CYCLICAL, TWO CYCLES OF GDP
  4. VINBLASTINE [Suspect]
     Active Substance: VINBLASTINE
     Indication: Nodular lymphocyte predominant Hodgkin lymphoma
     Dosage: FOUR CYCLES OF ABVD
  5. BRENTUXIMAB VEDOTIN [Suspect]
     Active Substance: BRENTUXIMAB VEDOTIN
     Indication: Nodular lymphocyte predominant Hodgkin lymphoma
     Dosage: FIVE CYCLES OF BV, CUMULATIVE DOSE: 5 CYCLICAL
  6. CYTARABINE [Suspect]
     Active Substance: CYTARABINE
     Indication: Bone marrow conditioning regimen
  7. ADRIAMYCIN [Suspect]
     Active Substance: DOXORUBICIN HYDROCHLORIDE
     Indication: Nodular lymphocyte predominant Hodgkin lymphoma
     Dosage: FOUR CYCLES OF ABVD
  8. PREDNISOLONE [Suspect]
     Active Substance: PREDNISOLONE
     Indication: Febrile neutropenia
     Dosage: ON DAY 3 POSTADMISSION
  9. DACARBAZINE [Suspect]
     Active Substance: DACARBAZINE
     Indication: Nodular lymphocyte predominant Hodgkin lymphoma
     Dosage: FOUR CYCLES OF ABVD
  10. RANIMUSTINE [Suspect]
     Active Substance: RANIMUSTINE
     Indication: Bone marrow conditioning regimen
  11. MELPHALAN [Suspect]
     Active Substance: MELPHALAN
     Indication: Bone marrow conditioning regimen
  12. BLEOMYCIN [Suspect]
     Active Substance: BLEOMYCIN SULFATE
     Indication: Nodular lymphocyte predominant Hodgkin lymphoma
     Dosage: FOUR CYCLES OF ABVD
  13. DEXAMETHASONE [Suspect]
     Active Substance: DEXAMETHASONE
     Indication: Nodular lymphocyte predominant Hodgkin lymphoma
     Dosage: TWO CYCLES OF GDP, CUMULATIVE DOSE: 2 CYCLICAL
  14. CEFEPIME [Concomitant]
     Active Substance: CEFEPIME HYDROCHLORIDE
     Indication: Febrile neutropenia
  15. FILGRASTIM [Concomitant]
     Active Substance: FILGRASTIM
     Indication: Febrile neutropenia
  16. PREDNISOLONE [Suspect]
     Active Substance: PREDNISOLONE
     Indication: Febrile neutropenia
  17. PREDNISOLONE [Suspect]
     Active Substance: PREDNISOLONE
     Indication: Febrile neutropenia
     Dosage: INCREASED

REACTIONS (2)
  - Pneumocystis jirovecii pneumonia [Fatal]
  - Gastroenteritis bacterial [Fatal]
